FAERS Safety Report 9071466 (Version 1)
Quarter: 2013Q1

REPORT INFORMATION
  Report Type: Spontaneous
  Country: US (occurrence: US)
  Receive Date: 20130206
  Receipt Date: 20130206
  Transmission Date: 20140127
  Serious: No
  Sender: FDA-Public Use
  Company Number: US-ALLERGAN-1211857US

PATIENT
  Age: 59 Year
  Sex: Female

DRUGS (3)
  1. RESTASIS? [Suspect]
     Indication: DRY EYE
     Dosage: 2 GTT, UNK
     Route: 047
     Dates: start: 201201, end: 20120710
  2. RESTASIS? [Suspect]
     Dosage: UNK
     Dates: start: 2011, end: 2011
  3. SYNTHROID [Concomitant]
     Indication: HYPOTHYROIDISM
     Dosage: UNK
     Route: 048
     Dates: start: 2007

REACTIONS (3)
  - Incorrect dose administered [Unknown]
  - Eye pain [Recovering/Resolving]
  - Eye irritation [Unknown]
